FAERS Safety Report 17925214 (Version 1)
Quarter: 2020Q2

REPORT INFORMATION
  Report Type: Spontaneous
  Country: DE (occurrence: DE)
  Receive Date: 20200622
  Receipt Date: 20200622
  Transmission Date: 20200714
  Serious: Yes (Hospitalization)
  Sender: FDA-Public Use
  Company Number: DE-TEVA-2020-DE-1789115

PATIENT
  Age: 86 Year
  Sex: Male

DRUGS (12)
  1. ENTRESTO [Suspect]
     Active Substance: SACUBITRIL\VALSARTAN
     Dosage: 2 DOSAGE FORMS DAILY; 24/26 MG, 1-0-1-0
  2. CLOPIDOGREL [Concomitant]
     Active Substance: CLOPIDOGREL BISULFATE
     Dosage: 75 MILLIGRAM DAILY;  1-0-0-0
  3. ACETYLSALICYLSAURE [Concomitant]
     Active Substance: ASPIRIN
     Dosage: 100 MILLIGRAM DAILY;  0-1-0-0
  4. EPLERENONE. [Suspect]
     Active Substance: EPLERENONE
     Dosage: 25 MILLIGRAM DAILY; 1-0-0-0
  5. TORASEMIDE [Suspect]
     Active Substance: TORSEMIDE
     Dosage: 10 MILLIGRAM DAILY; 1-0-0-0
  6. MOLSIDOMIN [Concomitant]
     Active Substance: MOLSIDOMINE
     Dosage: 8 MILLIGRAM DAILY; 1-0-0-0
  7. SIMVASTATIN. [Concomitant]
     Active Substance: SIMVASTATIN
     Dosage: 40 MILLIGRAM DAILY;  0-0-1-0
  8. HUMALOG [Concomitant]
     Active Substance: INSULIN LISPRO
     Dosage: ACCORDING TO THE SCHEME
  9. INSULIN DETEMIR [Concomitant]
     Active Substance: INSULIN DETEMIR
     Dosage: ACCORDING TO THE SCHEME
  10. METOPROLOL. [Concomitant]
     Active Substance: METOPROLOL
     Dosage: 47.5 MILLIGRAM DAILY;  1-0-1-0
  11. TAMSULOSIN [Concomitant]
     Active Substance: TAMSULOSIN
     Dosage: .4 MILLIGRAM DAILY;  1-0-0-0
  12. RANOLAZIN [Concomitant]
     Active Substance: RANOLAZINE
     Dosage: 750 MILLIGRAM DAILY; 1-0-1-0

REACTIONS (4)
  - Dehydration [Unknown]
  - Dizziness [Unknown]
  - Fall [Unknown]
  - Syncope [Unknown]
